FAERS Safety Report 10197106 (Version 1)
Quarter: 2014Q2

REPORT INFORMATION
  Report Type: Spontaneous
  Country: US (occurrence: None)
  Receive Date: 20140523
  Receipt Date: 20140523
  Transmission Date: 20141212
  Serious: Yes (Death, Hospitalization)
  Sender: FDA-Public Use
  Company Number: None

PATIENT
  Age: 84 Year
  Sex: Male
  Weight: 63.96 kg

DRUGS (4)
  1. AMIODARONE [Suspect]
     Indication: ATRIAL FIBRILLATION
     Dosage: 1 PILL
     Route: 048
     Dates: start: 20140311, end: 20140407
  2. FISH OIL [Concomitant]
  3. SPECTRAVITE SENIOR ONCE DAILY VITAMIN [Concomitant]
  4. VITAMIN D3 [Concomitant]

REACTIONS (7)
  - Decreased appetite [None]
  - Fatigue [None]
  - Dyspnoea [None]
  - Toxicity to various agents [None]
  - Pulmonary fibrosis [None]
  - Cardiac valve disease [None]
  - Hypoxia [None]
